FAERS Safety Report 15206992 (Version 1)
Quarter: 2018Q3

REPORT INFORMATION
  Report Type: Spontaneous
  Country: US (occurrence: US)
  Receive Date: 20180727
  Receipt Date: 20180727
  Transmission Date: 20181010
  Serious: No
  Sender: FDA-Public Use
  Company Number: US-BIOGEN-2018BI00608734

PATIENT
  Age: 60 Year
  Sex: Female

DRUGS (1)
  1. AVONEX [Suspect]
     Active Substance: INTERFERON BETA-1A
     Indication: MULTIPLE SCLEROSIS
     Route: 030
     Dates: start: 19980201

REACTIONS (10)
  - Musculoskeletal stiffness [Unknown]
  - Myalgia [Unknown]
  - Contusion [Recovered/Resolved]
  - Pain in extremity [Not Recovered/Not Resolved]
  - Gait disturbance [Unknown]
  - Peripheral swelling [Unknown]
  - Muscle swelling [Unknown]
  - Joint swelling [Not Recovered/Not Resolved]
  - Induration [Unknown]
  - Skin warm [Unknown]

NARRATIVE: CASE EVENT DATE: 201807
